FAERS Safety Report 19201247 (Version 2)
Quarter: 2022Q4

REPORT INFORMATION
  Report Type: Report from Study
  Country: ES (occurrence: ES)
  Receive Date: 20210430
  Receipt Date: 20221014
  Transmission Date: 20230113
  Serious: Yes (Hospitalization, Other)
  Sender: FDA-Public Use
  Company Number: ES-SHIRE-ALL1-2012-06503

PATIENT
  Age: 17 Year
  Sex: Male
  Weight: 42 kg

DRUGS (8)
  1. IDURSULFASE [Suspect]
     Active Substance: IDURSULFASE
     Indication: Mucopolysaccharidosis II
     Dosage: 0.5 MG/KG, 1X/WEEK
     Route: 041
     Dates: start: 20060814
  2. HYDROCORTISONE [Concomitant]
     Active Substance: HYDROCORTISONE
     Indication: Premedication
     Dosage: 5 MILLIGRAM, BID
     Route: 048
     Dates: start: 20070207
  3. HYDROCORTISONE [Concomitant]
     Active Substance: HYDROCORTISONE
     Indication: Steroid therapy
     Dosage: 5 MILLIGRAM, TID
     Route: 048
     Dates: start: 20061222, end: 20070207
  4. HYDROCORTISONE [Concomitant]
     Active Substance: HYDROCORTISONE
     Dosage: 10 MILLIGRAM, TID
     Route: 048
     Dates: start: 20061207, end: 20061222
  5. HYDROCORTISONE [Concomitant]
     Active Substance: HYDROCORTISONE
     Dosage: 20 MILLIGRAM, TID
     Route: 048
     Dates: start: 20061010, end: 20061207
  6. HYDROCORTISONE [Concomitant]
     Active Substance: HYDROCORTISONE
     Dosage: UNK
     Route: 065
     Dates: start: 20061010
  7. IPRATROPIUM [Concomitant]
     Active Substance: IPRATROPIUM
     Indication: Respiratory disorder
     Dosage: 250 MICROGRAM, QID
     Route: 055
     Dates: start: 20060102
  8. ALBUTEROL [Concomitant]
     Active Substance: ALBUTEROL
     Indication: Respiratory disorder
     Dosage: 5 MILLIGRAM, QID
     Route: 055
     Dates: start: 20060102

REACTIONS (4)
  - Spinal cord injury lumbar [Recovered/Resolved]
  - Pain in extremity [Recovered/Resolved]
  - Respiratory distress [Recovered/Resolved]
  - Intervertebral disc disorder [Recovered/Resolved]

NARRATIVE: CASE EVENT DATE: 20070302
